FAERS Safety Report 14536184 (Version 3)
Quarter: 2018Q1

REPORT INFORMATION
  Report Type: Spontaneous
  Country: IT (occurrence: IT)
  Receive Date: 20180215
  Receipt Date: 20180223
  Transmission Date: 20180509
  Serious: Yes (Hospitalization, Other)
  Sender: FDA-Public Use
  Company Number: IT-AUROBINDO-AUR-APL-2018-007022

PATIENT
  Age: 82 Year
  Sex: Male
  Weight: 80 kg

DRUGS (4)
  1. RAMIPRIL. [Suspect]
     Active Substance: RAMIPRIL
     Indication: HYPERTENSION
     Dosage: 5 MG, 1D
     Route: 048
     Dates: start: 20161010, end: 20171119
  2. LUVION (CANRENOIC ACID) [Suspect]
     Active Substance: CANRENOIC ACID
     Indication: CARDIOMYOPATHY
     Route: 048
     Dates: start: 20161010, end: 20171119
  3. ALBIGLUTIDE [Suspect]
     Active Substance: ALBIGLUTIDE
     Dosage: UNK UNK, EVERY WEEK
     Route: 065
     Dates: start: 20170302
  4. ALBIGLUTIDE [Suspect]
     Active Substance: ALBIGLUTIDE
     Dosage: 1 UNK, UNK
     Route: 065
     Dates: start: 20161026, end: 20170223

REACTIONS (3)
  - Hyperkalaemia [Recovered/Resolved]
  - Renal failure [Recovered/Resolved]
  - Metabolic acidosis [Recovered/Resolved]

NARRATIVE: CASE EVENT DATE: 20171117
